FAERS Safety Report 5464354-X (Version None)
Quarter: 2007Q3

REPORT INFORMATION
  Report Type: 
  Country: None (occurrence: None)
  Receive Date: 20070921
  Receipt Date: 20070910
  Transmission Date: 20080115
  Serious: Yes (Hospitalization)
  Sender: FDA-Public Use
  Company Number: JP-ROCHE-505953

PATIENT
  Age: 4 Year
  Sex: Female
  Weight: 15 kg

DRUGS (5)
  1. ROCEPHIN [Suspect]
     Route: 041
     Dates: start: 20070611, end: 20070618
  2. VANCOMYCIN [Suspect]
     Route: 041
     Dates: start: 20070611, end: 20070614
  3. VANCOMYCIN [Suspect]
     Dosage: DOSE INCREASED.
     Route: 041
     Dates: start: 20070615, end: 20070618
  4. ONON [Concomitant]
     Route: 048
  5. DEPAKENE [Concomitant]
     Route: 048

REACTIONS (2)
  - ARTHRALGIA [None]
  - PYREXIA [None]
